FAERS Safety Report 10449566 (Version 4)
Quarter: 2015Q2

REPORT INFORMATION
  Report Type: Spontaneous
  Country: CA (occurrence: None)
  Receive Date: 20140910
  Receipt Date: 20150430
  Transmission Date: 20150821
  Serious: Yes (Other)
  Sender: FDA-Public Use
  Company Number: 2014-20288

PATIENT
  Age: 87 Year
  Sex: Female

DRUGS (1)
  1. EYLEA [Suspect]
     Active Substance: AFLIBERCEPT
     Indication: NEOVASCULAR AGE-RELATED MACULAR DEGENERATION
     Dosage: RIGHT EYE, INTRAOCULAR
     Route: 031
     Dates: start: 20140620

REACTIONS (4)
  - Eye injury [None]
  - Facial bones fracture [None]
  - Fall [None]
  - Off label use [None]

NARRATIVE: CASE EVENT DATE: 20140804
